FAERS Safety Report 25281730 (Version 1)
Quarter: 2025Q2

REPORT INFORMATION
  Report Type: Report from Study
  Country: CN (occurrence: CN)
  Receive Date: 20250508
  Receipt Date: 20250508
  Transmission Date: 20250716
  Serious: Yes (Hospitalization)
  Sender: ROCHE
  Company Number: CN-ROCHE-10000161759

PATIENT
  Sex: Male
  Weight: 70 kg

DRUGS (36)
  1. POLATUZUMAB VEDOTIN [Suspect]
     Active Substance: POLATUZUMAB VEDOTIN
     Indication: Diffuse large B-cell lymphoma
     Route: 042
     Dates: start: 20240522, end: 20240522
  2. RITUXIMAB [Suspect]
     Active Substance: RITUXIMAB
     Indication: Diffuse large B-cell lymphoma
     Route: 042
     Dates: start: 20240521, end: 20240521
  3. ZANUBRUTINIB [Suspect]
     Active Substance: ZANUBRUTINIB
     Indication: Diffuse large B-cell lymphoma
     Route: 048
     Dates: start: 20240521, end: 20240610
  4. DOXORUBICIN HYDROCHLORIDE [Suspect]
     Active Substance: DOXORUBICIN HYDROCHLORIDE
     Indication: Diffuse large B-cell lymphoma
     Route: 042
     Dates: start: 20240521, end: 20240521
  5. METHYLPREDNISOLONE [Suspect]
     Active Substance: METHYLPREDNISOLONE
     Indication: Diffuse large B-cell lymphoma
     Dosage: DOSE - 5 TABLETS
     Route: 048
     Dates: start: 20240523, end: 20240526
  6. CYCLOPHOSPHAMIDE [Suspect]
     Active Substance: CYCLOPHOSPHAMIDE
     Indication: Diffuse large B-cell lymphoma
     Route: 042
     Dates: start: 20240522, end: 20240522
  7. METHYLPREDNISOLONE SODIUM SUCCINATE [Suspect]
     Active Substance: METHYLPREDNISOLONE SODIUM SUCCINATE
     Indication: Diffuse large B-cell lymphoma
     Route: 030
     Dates: start: 20240522, end: 20240522
  8. valaciclovir hydrochloride tablets [Concomitant]
     Route: 048
     Dates: start: 20240521
  9. SULFAMETHOXAZOLE [Concomitant]
     Active Substance: SULFAMETHOXAZOLE
     Route: 048
     Dates: start: 20240521
  10. TAF [Concomitant]
     Route: 048
     Dates: start: 20240721
  11. Omeprazole Sodium for Injection [Concomitant]
     Route: 042
     Dates: start: 20240521, end: 20240521
  12. Omeprazole Sodium for Injection [Concomitant]
     Route: 042
     Dates: start: 20240613, end: 20240614
  13. Omeprazole Sodium for Injection [Concomitant]
     Route: 042
     Dates: start: 20240523, end: 20240612
  14. Ursodeoxycholic Acid Capsules [Concomitant]
     Route: 048
     Dates: start: 20240520, end: 20240520
  15. PROMETHAZINE [Concomitant]
     Active Substance: PROMETHAZINE HYDROCHLORIDE
     Route: 030
     Dates: start: 20240613, end: 20240613
  16. PROMETHAZINE [Concomitant]
     Active Substance: PROMETHAZINE HYDROCHLORIDE
     Route: 030
     Dates: start: 20240521, end: 20240521
  17. IBUPROFEN [Concomitant]
     Active Substance: IBUPROFEN
     Route: 048
     Dates: start: 20240522, end: 20240522
  18. IBUPROFEN [Concomitant]
     Active Substance: IBUPROFEN
     Dosage: FREQUENCY - ONCE
     Route: 048
     Dates: start: 20240614, end: 20240614
  19. CETIRIZINE [Concomitant]
     Active Substance: CETIRIZINE HYDROCHLORIDE
     Route: 048
     Dates: start: 20240722, end: 20240722
  20. CETIRIZINE [Concomitant]
     Active Substance: CETIRIZINE HYDROCHLORIDE
     Dosage: FREQUENCY - ONCE
     Route: 048
     Dates: start: 20240614, end: 20240614
  21. Rabeprazole Sodium Enteric-coated Tablet [Concomitant]
     Route: 048
     Dates: start: 20240524, end: 20240527
  22. Rabeprazole Sodium Enteric-coated Tablet [Concomitant]
     Route: 048
     Dates: start: 20240615, end: 20240618
  23. CEFACLOR [Concomitant]
     Active Substance: CEFACLOR
     Route: 048
     Dates: start: 20240523, end: 20240523
  24. CEFACLOR [Concomitant]
     Active Substance: CEFACLOR
     Route: 048
     Dates: start: 20240615
  25. GLICLAZIDE [Concomitant]
     Active Substance: GLICLAZIDE
     Route: 048
  26. ROSUVASTATIN [Concomitant]
     Active Substance: ROSUVASTATIN
     Route: 048
  27. CELECOXIB [Concomitant]
     Active Substance: CELECOXIB
     Route: 048
  28. ITOPRIDE [Concomitant]
     Active Substance: ITOPRIDE
     Route: 048
  29. Oryz-Aspergillus Enzyme And Pancreatin Tablet [Concomitant]
     Route: 048
  30. INSULIN HUMAN [Concomitant]
     Active Substance: INSULIN HUMAN
     Dosage: DOSE - 6 IU
     Dates: start: 20240613, end: 20240613
  31. Sodium lactate Ringer injection [Concomitant]
     Route: 042
     Dates: start: 20240614, end: 20240614
  32. Netupitant and Palonosetron Hydrochloride Capsules [Concomitant]
     Dosage: DOSE - 1 CAPSULE
     Route: 048
     Dates: start: 20240614, end: 20240614
  33. INSULIN DEGLUDEC [Concomitant]
     Active Substance: INSULIN DEGLUDEC
     Dosage: DOSE - 10 OTHER
     Dates: start: 20240614, end: 20240615
  34. Ursodeoxycholic acid capsules [Concomitant]
     Route: 048
     Dates: start: 20240615
  35. Intravenous human immunoglobulin (PH4) [Concomitant]
     Route: 042
     Dates: start: 20240821, end: 20240821
  36. HEPARIN SODIUM [Concomitant]
     Active Substance: HEPARIN SODIUM
     Route: 042
     Dates: start: 20240821, end: 20240821

REACTIONS (2)
  - Anaemia [Recovering/Resolving]
  - Cerebral haemorrhage [Recovered/Resolved]

NARRATIVE: CASE EVENT DATE: 20240612
